FAERS Safety Report 18628657 (Version 1)
Quarter: 2020Q4

REPORT INFORMATION
  Report Type: Spontaneous
  Country: IN (occurrence: IN)
  Receive Date: 20201217
  Receipt Date: 20201217
  Transmission Date: 20210114
  Serious: Yes (Hospitalization, Other)
  Sender: FDA-Public Use
  Company Number: IN-BAYER-2020-227732

PATIENT
  Age: 75 Year
  Sex: Male

DRUGS (4)
  1. TINIDAZOLE. [Concomitant]
     Active Substance: TINIDAZOLE
     Indication: SQUAMOUS CELL CARCINOMA
     Dosage: UNK
     Route: 048
     Dates: start: 2018
  2. CIPROFLOXACIN. [Suspect]
     Active Substance: CIPROFLOXACIN
     Dosage: 1 DF, QD
     Route: 048
     Dates: start: 2018, end: 2018
  3. BECOSULES [ASCORBIC ACID;DEXPANTHENOL;NICOTINAMIDE;PYRIDOXINE HYDR [Concomitant]
     Indication: SQUAMOUS CELL CARCINOMA
  4. RANITIDINE. [Concomitant]
     Active Substance: RANITIDINE
     Indication: SQUAMOUS CELL CARCINOMA
     Dosage: UNK
     Route: 048
     Dates: start: 2018

REACTIONS (3)
  - Dermatitis bullous [Recovered/Resolved]
  - Drug hypersensitivity [Recovered/Resolved]
  - Tooth discolouration [Recovered/Resolved]

NARRATIVE: CASE EVENT DATE: 2018
